FAERS Safety Report 15617348 (Version 4)
Quarter: 2021Q4

REPORT INFORMATION
  Report Type: Report from Study
  Country: BR (occurrence: BR)
  Receive Date: 20181114
  Receipt Date: 20211025
  Transmission Date: 20220303
  Serious: Yes (Disabling, Other)
  Sender: FDA-Public Use
  Company Number: BR-TAKEDA-2018TUS025831

PATIENT
  Age: 41 Year
  Sex: Male
  Weight: 68 kg

DRUGS (7)
  1. VEDOLIZUMAB [Suspect]
     Active Substance: VEDOLIZUMAB
     Indication: Colitis ulcerative
     Dosage: 300 MILLIGRAM
     Route: 042
     Dates: start: 20180115, end: 20180813
  2. VEDOLIZUMAB [Suspect]
     Active Substance: VEDOLIZUMAB
     Indication: Colitis
     Dosage: UNK UNK, Q8WEEKS
     Route: 042
  3. VEDOLIZUMAB [Suspect]
     Active Substance: VEDOLIZUMAB
     Indication: Crohn^s disease
  4. DEXILANT [Suspect]
     Active Substance: DEXLANSOPRAZOLE
     Indication: Prophylaxis
     Dosage: 60 MG, QD
     Route: 048
     Dates: start: 2018, end: 2020
  5. PREDNISONE [Concomitant]
     Active Substance: PREDNISONE
     Indication: Colitis ulcerative
     Dosage: 10 MG, QD
  6. PREDNISONE [Concomitant]
     Active Substance: PREDNISONE
     Indication: Colitis
  7. PREDNISONE [Concomitant]
     Active Substance: PREDNISONE
     Indication: Crohn^s disease

REACTIONS (16)
  - Heart rate increased [Recovered/Resolved]
  - Arthralgia [Recovering/Resolving]
  - Dry mouth [Recovered/Resolved]
  - Visual impairment [Recovered/Resolved]
  - Gastrointestinal wall thickening [Recovering/Resolving]
  - Blood pressure fluctuation [Recovered/Resolved]
  - Discomfort [Recovered/Resolved]
  - Dyspnoea [Recovered/Resolved]
  - Pain [Recovering/Resolving]
  - Myalgia [Recovering/Resolving]
  - Constipation [Recovered/Resolved]
  - Asthenia [Recovering/Resolving]
  - Blood pressure increased [Recovered/Resolved]
  - Palpitations [Recovered/Resolved]
  - Nausea [Recovered/Resolved]
  - Product use in unapproved indication [Recovered/Resolved]

NARRATIVE: CASE EVENT DATE: 20180101
